FAERS Safety Report 25039522 (Version 1)
Quarter: 2025Q1

REPORT INFORMATION
  Report Type: Spontaneous
  Country: FR (occurrence: FR)
  Receive Date: 20250305
  Receipt Date: 20250305
  Transmission Date: 20250409
  Serious: Yes (Other)
  Sender: ROCHE
  Company Number: FR-ROCHE-10000218100

PATIENT
  Age: 11 Year
  Sex: Male

DRUGS (4)
  1. ALECTINIB [Suspect]
     Active Substance: ALECTINIB
     Indication: Anaplastic large cell lymphoma T- and null-cell types
     Route: 048
  2. ALECTINIB [Suspect]
     Active Substance: ALECTINIB
     Route: 048
  3. ALECTINIB [Suspect]
     Active Substance: ALECTINIB
     Route: 048
  4. CRIZOTINIB [Concomitant]
     Active Substance: CRIZOTINIB

REACTIONS (3)
  - Haemolytic anaemia [Recovered/Resolved]
  - Spur cell anaemia [Recovered/Resolved]
  - Haemolysis [Recovered/Resolved]
